FAERS Safety Report 21855643 (Version 2)
Quarter: 2023Q2

REPORT INFORMATION
  Report Type: Spontaneous
  Country: BR (occurrence: BR)
  Receive Date: 20230112
  Receipt Date: 20230414
  Transmission Date: 20230722
  Serious: Yes (Other)
  Sender: FDA-Public Use
  Company Number: BR-GLAXOSMITHKLINE-BR2019AMR166939

PATIENT

DRUGS (4)
  1. BENLYSTA [Suspect]
     Active Substance: BELIMUMAB
     Indication: Systemic lupus erythematosus
     Dosage: 520 MG
     Dates: start: 20190410
  2. BENLYSTA [Suspect]
     Active Substance: BELIMUMAB
     Dosage: 500 MG
  3. BENLYSTA [Suspect]
     Active Substance: BELIMUMAB
     Dosage: 640 MG, MO
  4. PREDNISONE [Suspect]
     Active Substance: PREDNISONE
     Indication: Product used for unknown indication
     Dosage: 1 DF, QD, 20 MG

REACTIONS (14)
  - Pneumonitis [Unknown]
  - Weight decreased [Unknown]
  - Pain [Unknown]
  - Pleural effusion [Recovered/Resolved]
  - Pulmonary pain [Recovered/Resolved]
  - Painful respiration [Recovered/Resolved]
  - Cough [Recovered/Resolved]
  - Chest pain [Recovered/Resolved]
  - Asthenia [Not Recovered/Not Resolved]
  - Therapy interrupted [Unknown]
  - Incorrect dose administered [Unknown]
  - Inappropriate schedule of product administration [Unknown]
  - Product availability issue [Unknown]
  - Product dose omission issue [Unknown]

NARRATIVE: CASE EVENT DATE: 20201101
